FAERS Safety Report 9908308 (Version 1)
Quarter: 2014Q1

REPORT INFORMATION
  Report Type: Spontaneous
  Country: US (occurrence: None)
  Receive Date: 20140214
  Receipt Date: 20140214
  Transmission Date: 20141002
  Serious: Yes (Hospitalization)
  Sender: FDA-Public Use
  Company Number: None

PATIENT
  Age: 63 Year
  Sex: Male
  Weight: 68.18 kg

DRUGS (6)
  1. LITHIUM [Suspect]
     Indication: BIPOLAR DISORDER
     Dosage: 900 MG Q AM PO
     Route: 048
  2. INSULIN [Concomitant]
  3. ASPART SS [Concomitant]
  4. LEVEMIR [Concomitant]
  5. CHOLECALCIFEROL [Concomitant]
  6. MIRTAZAPINE [Concomitant]

REACTIONS (5)
  - Hypovolaemia [None]
  - Dehydration [None]
  - Renal failure acute [None]
  - Nephrogenic diabetes insipidus [None]
  - Hypernatraemia [None]
